FAERS Safety Report 4805872-4 (Version None)
Quarter: 2005Q4

REPORT INFORMATION
  Report Type: 
  Country: None (occurrence: None)
  Receive Date: 20051018
  Receipt Date: 20051018
  Transmission Date: 20060501
  Serious: Yes (Hospitalization)
  Sender: FDA-Public Use
  Company Number: None

PATIENT
  Sex: Male
  Weight: 95.2554 kg

DRUGS (2)
  1. VELCADE [Suspect]
     Indication: MULTIPLE MYELOMA
     Dosage: 1.4MG D1,D4,D8,D11 IV BOLUS
     Route: 040
  2. THALIDOMIDE 50 MG [Suspect]
     Indication: MULTIPLE MYELOMA
     Dosage: 50 MG QDAY PO
     Route: 048

REACTIONS (1)
  - NO ADVERSE EFFECT [None]
